FAERS Safety Report 15662133 (Version 2)
Quarter: 2018Q4

REPORT INFORMATION
  Report Type: Spontaneous
  Country: US (occurrence: US)
  Receive Date: 20181127
  Receipt Date: 20181212
  Transmission Date: 20190205
  Serious: No
  Sender: FDA-Public Use
  Company Number: US-BEH-2018097041

PATIENT
  Age: 15 Year
  Sex: Female
  Weight: 83.45 kg

DRUGS (2)
  1. HAEGARDA [Suspect]
     Active Substance: HUMAN C1-ESTERASE INHIBITOR
     Indication: HEREDITARY ANGIOEDEMA
     Dosage: 5000 IU, TOT
     Route: 058
     Dates: start: 20181114, end: 20181114
  2. HAEGARDA [Suspect]
     Active Substance: HUMAN C1-ESTERASE INHIBITOR
     Indication: PROPHYLAXIS
     Dosage: 5000 IU, BIW (EVERY 3-4 DAYS)
     Route: 058
     Dates: start: 20180417, end: 20180424

REACTIONS (3)
  - Injection site vesicles [Unknown]
  - Infusion site vesicles [Unknown]
  - Infusion site vesicles [Recovering/Resolving]

NARRATIVE: CASE EVENT DATE: 20181114
